FAERS Safety Report 10170075 (Version 1)
Quarter: 2014Q2

REPORT INFORMATION
  Report Type: Spontaneous
  Country: NL (occurrence: NL)
  Receive Date: 20140513
  Receipt Date: 20140513
  Transmission Date: 20141212
  Serious: Yes (Hospitalization)
  Sender: FDA-Public Use
  Company Number: NL-BAYER-2014-070008

PATIENT
  Age: 46 Year
  Sex: Female

DRUGS (1)
  1. ULTRAVIST-300 [Suspect]
     Indication: THYROID DISORDER
     Dosage: 90 ML, ONCE
     Route: 042
     Dates: start: 20140509, end: 20140509

REACTIONS (2)
  - Aphonia [Recovered/Resolved]
  - Pharyngeal oedema [Recovered/Resolved]
